FAERS Safety Report 18362200 (Version 1)
Quarter: 2020Q4

REPORT INFORMATION
  Report Type: Spontaneous
  Country: US (occurrence: US)
  Receive Date: 20201008
  Receipt Date: 20201008
  Transmission Date: 20210114
  Serious: Yes (Other)
  Sender: FDA-Public Use
  Company Number: US-PFIZER INC-2020384598

PATIENT
  Age: 40 Year
  Sex: Male

DRUGS (2)
  1. RIFABUTIN. [Suspect]
     Active Substance: RIFABUTIN
     Indication: OPPORTUNISTIC INFECTION PROPHYLAXIS
     Dosage: 300 MG, DAILY
  2. FLUCONAZOLE. [Suspect]
     Active Substance: FLUCONAZOLE
     Indication: ANTIFUNGAL PROPHYLAXIS
     Dosage: 200 MG, DAILY

REACTIONS (2)
  - Toxicity to various agents [Recovered/Resolved]
  - Uveitis [Recovered/Resolved]
